FAERS Safety Report 5115879-8 (Version None)
Quarter: 2006Q3

REPORT INFORMATION
  Report Type: 
  Country: None (occurrence: None)
  Receive Date: 20060927
  Receipt Date: 20060918
  Transmission Date: 20061208
  Serious: Yes (Other)
  Sender: FDA-Public Use
  Company Number: PHBS2006FI14380

PATIENT
  Age: 78 Year
  Sex: Male

DRUGS (5)
  1. ZOMETA [Suspect]
     Indication: MULTIPLE MYELOMA
     Dosage: UNK, UNK
     Route: 065
     Dates: start: 20020201, end: 20020401
  2. ZOMETA [Suspect]
     Route: 065
     Dates: start: 20050701
  3. BONEFOS [Concomitant]
     Route: 065
     Dates: start: 20020501
  4. ALKERAN [Suspect]
     Route: 065
     Dates: start: 20050701
  5. PREDNISONE [Concomitant]
     Route: 065

REACTIONS (2)
  - OSTEONECROSIS [None]
  - TOOTH LOSS [None]
